FAERS Safety Report 6094159-0 (Version None)
Quarter: 2009Q1

REPORT INFORMATION
  Report Type: 
  Country: None (occurrence: None)
  Receive Date: 20090226
  Receipt Date: 20090219
  Transmission Date: 20090719
  Serious: Yes (Hospitalization)
  Sender: FDA-Public Use
  Company Number: JP-MERCK-0902USA03906

PATIENT
  Age: 51 Year
  Sex: Female

DRUGS (6)
  1. PRIMAXIN [Suspect]
     Indication: PNEUMONIA
     Route: 041
     Dates: start: 20090128, end: 20090128
  2. PRIMAXIN [Suspect]
     Route: 041
     Dates: start: 20090125, end: 20090125
  3. PRIMAXIN [Suspect]
     Route: 041
     Dates: start: 20090126, end: 20090127
  4. MEDROL [Concomitant]
     Indication: HAEMOLYTIC ANAEMIA
     Route: 048
     Dates: start: 20080125
  5. BENAMBAX [Concomitant]
     Route: 065
     Dates: start: 20090122
  6. MINOCYCLINE HCL [Concomitant]
     Route: 065

REACTIONS (1)
  - RHABDOMYOLYSIS [None]
